FAERS Safety Report 8562137-5 (Version None)
Quarter: 2012Q3

REPORT INFORMATION
  Report Type: 
  Country: None (occurrence: None)
  Receive Date: 20120802
  Receipt Date: 20120705
  Transmission Date: 20120928
  Serious: No
  Sender: FDA-Public Use
  Company Number: US-AMGEN-USASP2012041704

PATIENT
  Sex: Female

DRUGS (2)
  1. ENBREL [Suspect]
     Indication: PSORIASIS
  2. ENBREL [Suspect]
     Indication: PSORIATIC ARTHROPATHY
     Dosage: 25 MG, 2 TIMES/WK
     Dates: start: 20030301

REACTIONS (6)
  - PHLEBITIS [None]
  - PSORIASIS [None]
  - VISUAL IMPAIRMENT [None]
  - ARTHRALGIA [None]
  - FIBROMYALGIA [None]
  - TOOTHACHE [None]
